FAERS Safety Report 9149571 (Version 1)
Quarter: 2013Q1

REPORT INFORMATION
  Report Type: Spontaneous
  Country: US (occurrence: None)
  Receive Date: 20130228
  Receipt Date: 20130228
  Transmission Date: 20140127
  Serious: Yes (Life-Threatening, Hospitalization, Other)
  Sender: FDA-Public Use
  Company Number: None

PATIENT
  Age: 30 Year
  Sex: Female
  Weight: 96.62 kg

DRUGS (2)
  1. FENTANYL [Suspect]
     Indication: GASTROINTESTINAL SURGERY
     Dosage: FENTANYLE 50 MG X3 150MG
     Dates: start: 20130118
  2. VERSED [Suspect]
     Indication: GASTROINTESTINAL DISORDER
     Dosage: VERSED 10 MG X6 10 MG
     Dates: start: 20130118

REACTIONS (9)
  - Loss of consciousness [None]
  - Abdominal pain [None]
  - Headache [None]
  - Convulsion [None]
  - Hemiparesis [None]
  - Palpitations [None]
  - Hypertension [None]
  - Mental disorder [None]
  - General physical condition abnormal [None]
